FAERS Safety Report 8175581-5 (Version None)
Quarter: 2012Q1

REPORT INFORMATION
  Report Type: 
  Country: None (occurrence: None)
  Receive Date: 20120301
  Receipt Date: 20120220
  Transmission Date: 20120608
  Serious: Yes (Hospitalization)
  Sender: FDA-Public Use
  Company Number: US-BIOGENIDEC-2012BI004373

PATIENT
  Age: 36 Year
  Sex: Male

DRUGS (10)
  1. CITALOPRAM HYDROBROMIDE [Concomitant]
  2. TYSABRI [Suspect]
     Indication: MULTIPLE SCLEROSIS
     Route: 042
     Dates: start: 20110614
  3. PROTONIX [Concomitant]
  4. AMBIEN [Concomitant]
     Route: 048
  5. DILANTIN [Concomitant]
     Indication: CONVULSION
  6. ZONEGRAN [Concomitant]
     Indication: CONVULSION
  7. AZATHIOPRINE [Concomitant]
     Indication: MULTIPLE SCLEROSIS
  8. HYDROCODONE BITARTRATE [Concomitant]
  9. NEURONTIN [Concomitant]
     Route: 048
  10. COLACE [Concomitant]

REACTIONS (7)
  - FALL [None]
  - LACERATION [None]
  - NEUROMYELITIS OPTICA [None]
  - BRONCHITIS [None]
  - HYPERGLYCAEMIA [None]
  - MYELITIS TRANSVERSE [None]
  - BRONCHOPNEUMONIA [None]
